FAERS Safety Report 24559994 (Version 2)
Quarter: 2025Q1

REPORT INFORMATION
  Report Type: Spontaneous
  Country: US (occurrence: US)
  Receive Date: 20241029
  Receipt Date: 20250218
  Transmission Date: 20250408
  Serious: Yes (Other)
  Sender: AMGEN
  Company Number: US-AMGEN-USASP2024210462

PATIENT

DRUGS (2)
  1. TALIMOGENE LAHERPAREPVEC [Suspect]
     Active Substance: TALIMOGENE LAHERPAREPVEC
     Indication: Malignant melanoma
     Route: 036
  2. TALIMOGENE LAHERPAREPVEC [Suspect]
     Active Substance: TALIMOGENE LAHERPAREPVEC
     Dosage: UNK, Q2WK, 1X10^8 PLAQUE-FORMING UNITS (PFUS)/MILLILITER (ML)
     Route: 036

REACTIONS (2)
  - Malignant melanoma [Unknown]
  - Therapy partial responder [Unknown]
